FAERS Safety Report 7309360-5 (Version None)
Quarter: 2011Q1

REPORT INFORMATION
  Report Type: 
  Country: None (occurrence: None)
  Receive Date: 20110223
  Receipt Date: 20110111
  Transmission Date: 20110831
  Serious: Yes (Other)
  Sender: FDA-Public Use
  Company Number: PHHO2011US01739

PATIENT
  Age: 61 Year

DRUGS (2)
  1. EXELON [Suspect]
     Dosage: 9.5 MG, QD
     Route: 062
  2. EXELON [Suspect]
     Indication: DEMENTIA
     Dosage: UNK
     Route: 062

REACTIONS (8)
  - HOT FLUSH [None]
  - BODY TEMPERATURE FLUCTUATION [None]
  - FATIGUE [None]
  - VOMITING PROJECTILE [None]
  - NAUSEA [None]
  - FEELING COLD [None]
  - INFLUENZA [None]
  - DIZZINESS [None]
